FAERS Safety Report 15536589 (Version 1)
Quarter: 2018Q4

REPORT INFORMATION
  Report Type: Spontaneous
  Country: US (occurrence: US)
  Receive Date: 20181016
  Receipt Date: 20181016
  Transmission Date: 20190205
  Serious: No
  Sender: FDA-Public Use
  Company Number: None

PATIENT
  Age: 46 Year
  Sex: Female

DRUGS (1)
  1. ENBREL [Suspect]
     Active Substance: ETANERCEPT
     Dosage: OTHER
     Route: 058
     Dates: start: 20180424

REACTIONS (5)
  - Product dose omission [None]
  - Condition aggravated [None]
  - Arthralgia [None]
  - Swelling [None]
  - Joint swelling [None]

NARRATIVE: CASE EVENT DATE: 20181010
